FAERS Safety Report 11010644 (Version 2)
Quarter: 2015Q3

REPORT INFORMATION
  Report Type: Spontaneous
  Country: US (occurrence: US)
  Receive Date: 20150410
  Receipt Date: 20150909
  Transmission Date: 20151125
  Serious: Yes (Death, Hospitalization, Other)
  Sender: FDA-Public Use
  Company Number: US-MERCK-1504USA003828

PATIENT
  Sex: Female
  Weight: 61.22 kg

DRUGS (1)
  1. JANUVIA [Suspect]
     Active Substance: SITAGLIPTIN PHOSPHATE
     Indication: TYPE 2 DIABETES MELLITUS
     Dosage: 100 MG, QD
     Route: 048
     Dates: start: 20131113

REACTIONS (2)
  - Pancreatic carcinoma [Fatal]
  - Pancreatitis acute [Unknown]

NARRATIVE: CASE EVENT DATE: 2014
